FAERS Safety Report 8809944 (Version 1)
Quarter: 2012Q4

REPORT INFORMATION
  Report Type: Report from Study
  Country: US (occurrence: US)
  Receive Date: 20120926
  Receipt Date: 20120926
  Transmission Date: 20130627
  Serious: Yes (Other)
  Sender: FDA-Public Use
  Company Number: US-009507513-1209USA008550

PATIENT
  Sex: Male
  Weight: 58.96 kg

DRUGS (4)
  1. FOSAMAX [Suspect]
     Indication: BONE DENSITY ABNORMAL
     Dosage: UNK
     Dates: start: 2012
  2. HUMIRA [Suspect]
     Indication: PSORIASIS
     Dosage: 40 mg, 1 in 2 weeks
     Dates: start: 20110803, end: 201201
  3. HUMIRA [Suspect]
     Dosage: UNK
     Dates: start: 2012
  4. PREDNISONE [Suspect]
     Indication: INTERVERTEBRAL DISC DISORDER

REACTIONS (6)
  - Thoracic vertebral fracture [Unknown]
  - Spinal compression fracture [Unknown]
  - Surgery [Unknown]
  - Intervertebral disc disorder [Unknown]
  - Psoriasis [Unknown]
  - Nausea [Unknown]
